FAERS Safety Report 8381934-2 (Version None)
Quarter: 2012Q2

REPORT INFORMATION
  Report Type: 
  Country: None (occurrence: None)
  Receive Date: 20120524
  Receipt Date: 20120509
  Transmission Date: 20120825
  Serious: Yes (Other)
  Sender: FDA-Public Use
  Company Number: BR-JNJFOC-20120510700

PATIENT
  Sex: Female

DRUGS (3)
  1. REMICADE [Suspect]
     Route: 042
     Dates: start: 20120508, end: 20120508
  2. REMICADE [Suspect]
     Indication: CROHN'S DISEASE
     Route: 042
  3. REMICADE [Suspect]
     Route: 042

REACTIONS (7)
  - HYPERSENSITIVITY [None]
  - PRURITUS [None]
  - ABSCESS [None]
  - TACHYCARDIA [None]
  - INFUSION RELATED REACTION [None]
  - RASH [None]
  - OEDEMA [None]
